FAERS Safety Report 5059988-0 (Version None)
Quarter: 2006Q3

REPORT INFORMATION
  Report Type: 
  Country: None (occurrence: None)
  Receive Date: 20060724
  Receipt Date: 20060329
  Transmission Date: 20061208
  Serious: Yes (Other)
  Sender: FDA-Public Use
  Company Number: US-GLAXOSMITHKLINE-A0599435A

PATIENT
  Age: 51 Year
  Sex: Female

DRUGS (7)
  1. NICODERM CQ [Suspect]
     Indication: SMOKING CESSATION THERAPY
     Route: 062
     Dates: start: 20050501, end: 20060101
  2. GEODON [Concomitant]
  3. DEPAKOTE [Concomitant]
  4. PAXIL [Concomitant]
  5. TEGRETOL [Concomitant]
  6. TOURO DM (SINUSITIS) [Concomitant]
  7. BACTRIM DS [Concomitant]

REACTIONS (9)
  - ABNORMAL DREAMS [None]
  - APHASIA [None]
  - BIPOLAR DISORDER [None]
  - HALLUCINATION [None]
  - HEADACHE [None]
  - MANIA [None]
  - SCHIZOPHRENIA [None]
  - SLEEP DISORDER [None]
  - SPEECH DISORDER [None]
